FAERS Safety Report 24067595 (Version 2)
Quarter: 2024Q3

REPORT INFORMATION
  Report Type: Spontaneous
  Country: CA (occurrence: CA)
  Receive Date: 20240710
  Receipt Date: 20240723
  Transmission Date: 20241016
  Serious: Yes (Disabling)
  Sender: MDD OPERATIONS
  Company Number: CA-ZAMBON-202401843COR

PATIENT
  Age: 58 Year
  Sex: Male

DRUGS (13)
  1. SAFINAMIDE [Suspect]
     Active Substance: SAFINAMIDE
     Indication: Parkinson^s disease
     Route: 048
     Dates: end: 20240617
  2. SAFINAMIDE [Suspect]
     Active Substance: SAFINAMIDE
     Route: 048
     Dates: start: 20240617, end: 20240701
  3. SAFINAMIDE [Suspect]
     Active Substance: SAFINAMIDE
     Route: 048
     Dates: start: 20240708
  4. CARBIDOPA\LEVODOPA [Concomitant]
     Active Substance: CARBIDOPA\LEVODOPA
     Dosage: NOT PROVIDED
  5. CARBIDOPA\LEVODOPA [Concomitant]
     Active Substance: CARBIDOPA\LEVODOPA
     Dosage: (100 MG LEVODOPA AND 25 MG CARBIDOPA)
  6. CARBIDOPA\LEVODOPA [Concomitant]
     Active Substance: CARBIDOPA\LEVODOPA
     Dosage: (100 MG LEVODOPA AND 25 MG CARBIDOPA)
  7. CARBIDOPA\LEVODOPA [Concomitant]
     Active Substance: CARBIDOPA\LEVODOPA
     Dosage: (200MG LEVODOPA AND 50 MG CARBIDOPA)
  8. TYLENOL [Concomitant]
     Active Substance: ACETAMINOPHEN
     Dosage: 500MG
  9. ATORVASTATIN [Concomitant]
     Active Substance: ATORVASTATIN
     Dosage: 80MG
  10. PANTOPRAZOLE [Concomitant]
     Active Substance: PANTOPRAZOLE
     Dosage: 40MG
  11. Clopidodrel [Concomitant]
     Dosage: 75MG
  12. CANDESARTAN [Concomitant]
     Active Substance: CANDESARTAN
     Dosage: 8MG
  13. ASPIRIN [Concomitant]
     Active Substance: ASPIRIN
     Dosage: 80MG

REACTIONS (4)
  - Musculoskeletal stiffness [Not Recovered/Not Resolved]
  - Fatigue [Not Recovered/Not Resolved]
  - Parkinson^s disease [Not Recovered/Not Resolved]
  - Muscle rigidity [Not Recovered/Not Resolved]

NARRATIVE: CASE EVENT DATE: 20240617
